FAERS Safety Report 9629533 (Version 2)
Quarter: 2015Q2

REPORT INFORMATION
  Report Type: Spontaneous
  Country: IN (occurrence: IN)
  Receive Date: 20131017
  Receipt Date: 20150514
  Transmission Date: 20150821
  Serious: Yes (Hospitalization)
  Sender: FDA-Public Use
  Company Number: PHHY2013IN113786

PATIENT
  Age: 65 Year
  Sex: Male

DRUGS (4)
  1. ENALAPRIL [Concomitant]
     Active Substance: ENALAPRIL
     Indication: HYPERTENSION
     Dosage: 10 MG, UNK
     Route: 065
  2. CISPLATIN. [Concomitant]
     Active Substance: CISPLATIN
     Indication: GASTROOESOPHAGEAL CANCER
     Route: 065
  3. 5-FLUOROURACIL [Suspect]
     Active Substance: FLUOROURACIL
     Indication: GASTROOESOPHAGEAL CANCER
     Route: 040
  4. FOLINIC ACID [Concomitant]
     Active Substance: LEUCOVORIN
     Indication: GASTROOESOPHAGEAL CANCER
     Route: 065

REACTIONS (7)
  - Burning sensation [Recovering/Resolving]
  - Chest pain [Recovering/Resolving]
  - Arterial stenosis [Unknown]
  - Bundle branch block left [Recovering/Resolving]
  - Hyperhidrosis [Unknown]
  - Electrocardiogram ST segment elevation [Recovering/Resolving]
  - Arteriospasm coronary [Recovering/Resolving]
